FAERS Safety Report 6096742-5 (Version None)
Quarter: 2009Q1

REPORT INFORMATION
  Report Type: 
  Country: None (occurrence: None)
  Receive Date: 20090227
  Receipt Date: 20090215
  Transmission Date: 20090719
  Serious: Yes (Other)
  Sender: FDA-Public Use
  Company Number: ZA-PFIZER INC-2009170847

PATIENT

DRUGS (2)
  1. ZYVOXID [Suspect]
     Dosage: UNK
  2. MERONEM [Concomitant]

REACTIONS (1)
  - CONFUSIONAL STATE [None]
